FAERS Safety Report 9231145 (Version 4)
Quarter: 2013Q3

REPORT INFORMATION
  Report Type: Spontaneous
  Country: US (occurrence: US)
  Receive Date: 20130415
  Receipt Date: 20130716
  Transmission Date: 20140515
  Serious: No
  Sender: FDA-Public Use
  Company Number: US-009507513-1304USA004768

PATIENT
  Sex: Female

DRUGS (1)
  1. NUVARING [Suspect]
     Indication: CONTRACEPTION
     Dosage: UNK
     Dates: end: 20130409

REACTIONS (5)
  - Vulvovaginal discomfort [Unknown]
  - Product shape issue [Unknown]
  - Medical device discomfort [Unknown]
  - Inappropriate schedule of drug administration [Unknown]
  - Device expulsion [Unknown]
